FAERS Safety Report 9252198 (Version 1)
Quarter: 2013Q1

REPORT INFORMATION
  Report Type: Spontaneous
  Country: US (occurrence: None)
  Receive Date: 20130305
  Receipt Date: 20130305
  Transmission Date: 20140127
  Serious: Yes (Other)
  Sender: FDA-Public Use
  Company Number: 163-21880-12091101

PATIENT
  Age: 74 Year
  Sex: Female
  Weight: 85.28 kg

DRUGS (12)
  1. REVLIMID [Suspect]
     Dosage: 1 IN 1 D
     Route: 048
     Dates: start: 20111101
  2. ALPRAZOLAM (ALPRAZOLAM) [Suspect]
  3. CALCIUM (CALCIUM) [Suspect]
  4. CENTRUM SILVER [Suspect]
  5. FOSAMAX (ALENDRONATE SODIUM) [Suspect]
  6. IMODIUM [Suspect]
  7. LEVOTHYROXIN [Suspect]
  8. LOSARTAN / HCTZ [Suspect]
  9. NEURONTIN (GABAPENTIN) [Suspect]
  10. PERCOCET [Suspect]
  11. PRILOSEC [Suspect]
  12. WELLBUTRIN (BUPROPION HYDROCHLORIDE) [Suspect]

REACTIONS (3)
  - Cystitis [None]
  - Dysuria [None]
  - Micturition urgency [None]
